FAERS Safety Report 10680140 (Version 1)
Quarter: 2014Q4

REPORT INFORMATION
  Report Type: Spontaneous
  Country: CH (occurrence: CH)
  Receive Date: 20141229
  Receipt Date: 20141229
  Transmission Date: 20150529
  Serious: Yes (Other)
  Sender: FDA-Public Use
  Company Number: CH-PFIZER INC-2014355447

PATIENT
  Age: 61 Year
  Sex: Female

DRUGS (11)
  1. EXFORGE [Concomitant]
     Active Substance: AMLODIPINE BESYLATE\VALSARTAN
     Dosage: 1 DF (AMLODIPINE 10 MG / VALSARTAN 160 MG), UNK
     Route: 048
     Dates: start: 2012
  2. SYMBICORT [Concomitant]
     Active Substance: BUDESONIDE\FORMOTEROL FUMARATE DIHYDRATE
     Dosage: BUDESONIDE 200 UG/ FORMOTEROL FUMARATE 6 UG, UNK
     Route: 055
  3. CELEBREX [Suspect]
     Active Substance: CELECOXIB
     Dosage: 200 MG, 2X/DAY, LONG TERM USE
     Route: 048
     Dates: start: 2012
  4. ZOLOFT [Suspect]
     Active Substance: SERTRALINE HYDROCHLORIDE
     Dosage: 100 MG, DAILY, LONG TERM USE
     Route: 048
     Dates: start: 2012
  5. XARELTO [Suspect]
     Active Substance: RIVAROXABAN
     Indication: WALKING AID USER
  6. PARACETAMOL [Concomitant]
     Active Substance: ACETAMINOPHEN
     Dosage: 1 G, 4X/DAY
  7. CLIMARA [Concomitant]
     Active Substance: ESTRADIOL
     Dosage: 1 DF, UNK
     Route: 062
     Dates: start: 2012
  8. XARELTO [Suspect]
     Active Substance: RIVAROXABAN
     Indication: THROMBOSIS PROPHYLAXIS
     Dosage: 10 MG, DAILY
     Route: 048
     Dates: start: 20141104, end: 20141112
  9. MINALGIN [Concomitant]
     Active Substance: METAMIZOLE
     Dosage: 1000 MG, 4X/DAY, LONG TERM USE
     Route: 048
     Dates: start: 2012
  10. SPIRIVA [Concomitant]
     Active Substance: TIOTROPIUM BROMIDE MONOHYDRATE
     Dosage: UNK
     Route: 055
  11. NALTREXON [Concomitant]
     Active Substance: NALTREXONE
     Indication: ALCOHOLISM
     Dosage: 50 MG, DAILY
     Route: 048
     Dates: start: 2012

REACTIONS (2)
  - Colitis microscopic [Not Recovered/Not Resolved]
  - Diarrhoea [Not Recovered/Not Resolved]

NARRATIVE: CASE EVENT DATE: 20141111
